FAERS Safety Report 10269033 (Version 1)
Quarter: 2014Q2

REPORT INFORMATION
  Report Type: Report from Study
  Country: US (occurrence: US)
  Receive Date: 20140630
  Receipt Date: 20140630
  Transmission Date: 20141212
  Serious: Yes (Hospitalization, Other)
  Sender: FDA-Public Use
  Company Number: US-ABBVIE-14P-163-1250567-00

PATIENT
  Sex: Female

DRUGS (4)
  1. HUMIRA [Suspect]
     Indication: CROHN^S DISEASE
     Dates: start: 2008, end: 20140602
  2. HUMIRA [Suspect]
     Dates: start: 20140602
  3. CIPRO [Suspect]
     Indication: FISTULA
     Dates: start: 201401
  4. FLAGYL [Suspect]
     Indication: FISTULA
     Dates: start: 2014

REACTIONS (16)
  - Fistula [Recovering/Resolving]
  - Crohn^s disease [Recovering/Resolving]
  - Infected fistula [Recovering/Resolving]
  - Heart rate irregular [Recovered/Resolved]
  - Dizziness [Recovered/Resolved]
  - Dyspnoea [Recovered/Resolved]
  - Gastroenteritis viral [Recovering/Resolving]
  - Menstruation irregular [Recovering/Resolving]
  - Menstrual disorder [Recovering/Resolving]
  - Diarrhoea [Recovering/Resolving]
  - Weight decreased [Recovering/Resolving]
  - Heart rate irregular [Recovering/Resolving]
  - Dizziness [Recovering/Resolving]
  - Dyspnoea [Recovering/Resolving]
  - Activities of daily living impaired [Recovering/Resolving]
  - Drug ineffective [Unknown]
